FAERS Safety Report 6641530-1 (Version None)
Quarter: 2010Q1

REPORT INFORMATION
  Report Type: 
  Country: None (occurrence: None)
  Receive Date: 20100317
  Receipt Date: 20100317
  Transmission Date: 20100710
  Serious: Yes (Hospitalization)
  Sender: FDA-Public Use
  Company Number: None

PATIENT
  Age: 13 Year
  Sex: Female
  Weight: 46.7205 kg

DRUGS (1)
  1. CONCERTA [Suspect]

REACTIONS (2)
  - SUPRAVENTRICULAR TACHYCARDIA [None]
  - TREATMENT FAILURE [None]
